FAERS Safety Report 5550148-3 (Version None)
Quarter: 2007Q4

REPORT INFORMATION
  Report Type: 
  Country: None (occurrence: None)
  Receive Date: 20071212
  Receipt Date: 20070425
  Transmission Date: 20080405
  Serious: No
  Sender: FDA-Public Use
  Company Number: US-AMGEN-KDL217165

PATIENT
  Sex: Female

DRUGS (4)
  1. ENBREL [Suspect]
     Indication: RHEUMATOID ARTHRITIS
     Route: 058
     Dates: start: 20051101
  2. ENBREL [Suspect]
     Indication: DRUG USE FOR UNKNOWN INDICATION
  3. ENBREL [Suspect]
     Indication: OSTEOARTHRITIS
  4. METHOTREXATE [Concomitant]
     Route: 048
     Dates: start: 20030101

REACTIONS (10)
  - BACK PAIN [None]
  - ESCHERICHIA INFECTION [None]
  - INJECTION SITE ERYTHEMA [None]
  - KIDNEY INFECTION [None]
  - MORTON'S NEUROMA [None]
  - MUCOSAL INFLAMMATION [None]
  - NECK PAIN [None]
  - RASH [None]
  - RHEUMATOID ARTHRITIS [None]
  - SLEEP APNOEA SYNDROME [None]
